FAERS Safety Report 7016448-5 (Version None)
Quarter: 2010Q3

REPORT INFORMATION
  Report Type: 
  Country: None (occurrence: None)
  Receive Date: 20100927
  Receipt Date: 20100914
  Transmission Date: 20110219
  Serious: Yes (Other)
  Sender: FDA-Public Use
  Company Number: US-JNJFOC-20100806363

PATIENT
  Sex: Male
  Weight: 72.58 kg

DRUGS (4)
  1. DURAGESIC-100 [Suspect]
     Indication: BACK PAIN
     Route: 062
  2. DURAGESIC-100 [Suspect]
     Route: 062
  3. DURAGESIC-100 [Suspect]
     Route: 062
  4. DURAGESIC-100 [Suspect]
     Route: 062

REACTIONS (7)
  - ACCIDENT AT WORK [None]
  - GASTRIC DISORDER [None]
  - INSOMNIA [None]
  - NERVE INJURY [None]
  - NERVOUSNESS [None]
  - PAIN [None]
  - PRODUCT ADHESION ISSUE [None]
